FAERS Safety Report 23949101 (Version 1)
Quarter: 2024Q2

REPORT INFORMATION
  Report Type: Other
  Country: AU (occurrence: None)
  Receive Date: 20240607
  Receipt Date: 20240607
  Transmission Date: 20240716
  Serious: Yes (Death, Other)
  Sender: FDA-Public Use
  Company Number: AU-ROCHE-3575395

PATIENT

DRUGS (1)
  1. RITUXIMAB [Suspect]
     Active Substance: RITUXIMAB
     Indication: Neuromyelitis optica spectrum disorder
     Dosage: TWO 500 MG INFUSIONS FOLLOWED BY SINGLE 500 MG DOSES
     Route: 042

REACTIONS (13)
  - Urosepsis [Fatal]
  - Non-small cell lung cancer [Unknown]
  - Acute myeloid leukaemia [Unknown]
  - Secondary immunodeficiency [Unknown]
  - Neuroendocrine tumour of the lung [Unknown]
  - Hypersensitivity [Unknown]
  - Hepatic cirrhosis [Unknown]
  - Sinusitis [Unknown]
  - COVID-19 pneumonia [Unknown]
  - Urinary tract infection [Unknown]
  - Giardiasis [Unknown]
  - Herpes zoster [Unknown]
  - Pneumonia [Unknown]
